FAERS Safety Report 20524619 (Version 2)
Quarter: 2022Q1

REPORT INFORMATION
  Report Type: Spontaneous
  Country: US (occurrence: US)
  Receive Date: 20220228
  Receipt Date: 20220310
  Transmission Date: 20220423
  Serious: Yes (Other)
  Sender: FDA-Public Use
  Company Number: US-CELLTRION INC.-2022US002222

PATIENT

DRUGS (2)
  1. TRUXIMA [Suspect]
     Active Substance: RITUXIMAB-ABBS
     Indication: Encephalitis
     Dosage: 1000 MG EVERY 6 MONTHS (DECEMBER 2021) - JUNE 2022
     Dates: start: 202112
  2. TRUXIMA [Suspect]
     Active Substance: RITUXIMAB-ABBS
     Indication: Encephalomyelitis

REACTIONS (3)
  - Encephalitis [Unknown]
  - Encephalomyelitis [Unknown]
  - Off label use [Unknown]
